FAERS Safety Report 8974630 (Version 7)
Quarter: 2013Q2

REPORT INFORMATION
  Report Type: Spontaneous
  Country: US (occurrence: US)
  Receive Date: 20121220
  Receipt Date: 20130603
  Transmission Date: 20140414
  Serious: Yes (Hospitalization, Other)
  Sender: FDA-Public Use
  Company Number: US-009507513-1212USA007584

PATIENT
  Sex: Female
  Weight: 63.39 kg

DRUGS (8)
  1. FOSAMAX [Suspect]
     Indication: OSTEOPOROSIS
     Dosage: UNK
     Route: 048
     Dates: start: 20010601, end: 20050601
  2. FOSAMAX [Suspect]
     Dosage: 70 MG, QW
     Route: 048
  3. FOSAMAX PLUS D [Suspect]
     Indication: OSTEOPOROSIS
     Dosage: UNK
     Route: 048
     Dates: start: 20050601, end: 20090601
  4. ALENDRONATE SODIUM [Suspect]
     Dosage: 70 MG, QW
     Route: 048
  5. DILTIAZEM HYDROCHLORIDE [Concomitant]
     Indication: HYPERTENSION
     Dosage: 240 MG, QD
     Dates: start: 1996
  6. HORMONES (UNSPECIFIED) [Concomitant]
     Dosage: UNK
     Dates: start: 2001
  7. LEVOTHYROXINE SODIUM [Concomitant]
     Indication: HYPOTHYROIDISM
     Dosage: 75 MICROGRAM, UNK
     Dates: start: 1990
  8. LISINOPRIL [Concomitant]
     Indication: HYPERTENSION
     Dosage: 40 MG, UNK
     Dates: start: 2002

REACTIONS (38)
  - Jaw operation [Unknown]
  - Cholecystectomy [Unknown]
  - Stent placement [Unknown]
  - Angioplasty [Unknown]
  - Osteonecrosis of jaw [Unknown]
  - Appendicectomy [Unknown]
  - Nervousness [Unknown]
  - Restless legs syndrome [Unknown]
  - Eye operation [Unknown]
  - Ectropion [Unknown]
  - Limb operation [Unknown]
  - Eyelid operation [Unknown]
  - Eyelid operation [Unknown]
  - Hiatus hernia [Unknown]
  - Hypercholesterolaemia [Unknown]
  - Sleep apnoea syndrome [Unknown]
  - Tooth fracture [Unknown]
  - Exophthalmos [Unknown]
  - Tooth extraction [Unknown]
  - Endocrine ophthalmopathy [Unknown]
  - Peripheral arterial occlusive disease [Unknown]
  - Chest pain [Unknown]
  - Fatigue [Unknown]
  - Oral surgery [Unknown]
  - Hepatitis [Unknown]
  - Weight decreased [Recovering/Resolving]
  - Vitamin B12 deficiency [Unknown]
  - Weight decreased [Unknown]
  - Chronic obstructive pulmonary disease [Not Recovered/Not Resolved]
  - Arthritis [Unknown]
  - Tooth extraction [Unknown]
  - Osteomyelitis [Unknown]
  - Gastrooesophageal reflux disease [Unknown]
  - Dysphagia [Unknown]
  - Vomiting [Recovered/Resolved]
  - Diarrhoea [Unknown]
  - Arthralgia [Unknown]
  - Nausea [Unknown]
